FAERS Safety Report 10914734 (Version 1)
Quarter: 2015Q1

REPORT INFORMATION
  Report Type: Spontaneous
  Country: DE (occurrence: DE)
  Receive Date: 20150313
  Receipt Date: 20150313
  Transmission Date: 20150721
  Serious: Yes (Other)
  Sender: FDA-Public Use
  Company Number: PHHY2015DE027622

PATIENT
  Age: 73 Year
  Sex: Female

DRUGS (1)
  1. ACETYLSALICYLIC ACID [Suspect]
     Active Substance: ASPIRIN
     Indication: CORONARY ARTERY DISEASE
     Route: 065

REACTIONS (7)
  - Visual acuity reduced [Recovered/Resolved]
  - Vision blurred [Unknown]
  - Optic atrophy [Unknown]
  - Visual field defect [Unknown]
  - Haematoma [Unknown]
  - Eye haemorrhage [Recovered/Resolved]
  - Pain [Unknown]
